FAERS Safety Report 19478281 (Version 2)
Quarter: 2021Q3

REPORT INFORMATION
  Report Type: Report from Study
  Country: US (occurrence: US)
  Receive Date: 20210630
  Receipt Date: 20210714
  Transmission Date: 20211014
  Serious: Yes (Other)
  Sender: FDA-Public Use
  Company Number: US-SA-2021SA213515

PATIENT
  Age: 57 Year
  Sex: Female

DRUGS (2)
  1. AUBAGIO [Suspect]
     Active Substance: TERIFLUNOMIDE
     Dosage: 14 MG, QD
     Route: 048
     Dates: start: 20210608
  2. AUBAGIO [Suspect]
     Active Substance: TERIFLUNOMIDE
     Indication: MULTIPLE SCLEROSIS
     Dosage: 14 MG, QD
     Route: 048
     Dates: start: 202008

REACTIONS (11)
  - Hormone level abnormal [Unknown]
  - Depression [Unknown]
  - Electric shock sensation [Recovered/Resolved]
  - Skin discolouration [Unknown]
  - Headache [Not Recovered/Not Resolved]
  - Contusion [Unknown]
  - Multiple sclerosis [Unknown]
  - Migraine [Not Recovered/Not Resolved]
  - Nausea [Unknown]
  - Vision blurred [Unknown]
  - Memory impairment [Not Recovered/Not Resolved]

NARRATIVE: CASE EVENT DATE: 2020
